FAERS Safety Report 8050079 (Version 4)
Quarter: 2013Q2

REPORT INFORMATION
  Report Type: Spontaneous
  Country: US (occurrence: US)
  Receive Date: 20110722
  Receipt Date: 20130430
  Transmission Date: 20140414
  Serious: Yes (Other)
  Sender: FDA-Public Use
  Company Number: US-BAYER-2011-063316

PATIENT
  Age: 27 Year
  Sex: Female
  Weight: 124.72 kg

DRUGS (14)
  1. YAZ [Suspect]
     Dosage: UNK
     Dates: start: 200705, end: 200908
  2. MICARDIS [Concomitant]
     Indication: BLOOD PRESSURE ABNORMAL
     Dosage: 40 MG, UNK
     Dates: start: 200709
  3. EFEXOR [Concomitant]
     Dosage: 75 MG, UNK
  4. METFORMIN [Concomitant]
     Dosage: 1000 MG, BID
  5. SYNTHROID [Concomitant]
     Indication: THYROID DISORDER
     Dosage: 112 ?G, UNK
  6. ACIPHEX [Concomitant]
     Dosage: 20 MG, UNK
  7. SPIRONOLACTONE [Concomitant]
     Dosage: UNK
  8. CEPHALEXIN [Concomitant]
     Dosage: 250 MG, UNK
  9. REGLAN [Concomitant]
     Dosage: 10 MG, UNK
  10. NOR-QD [Concomitant]
     Dosage: UNK
     Dates: start: 20090828
  11. CAMILA [Concomitant]
  12. ALDOSTERONE ANTAGONISTS [Concomitant]
  13. PERCOCET [Concomitant]
  14. YASMIN [Suspect]

REACTIONS (8)
  - Thrombosis [None]
  - Gallbladder injury [None]
  - Injury [None]
  - Pain [None]
  - General physical health deterioration [None]
  - Cholecystitis acute [None]
  - Emotional distress [None]
  - Deep vein thrombosis [None]
